FAERS Safety Report 23431513 (Version 1)
Quarter: 2024Q1

REPORT INFORMATION
  Report Type: Other
  Country: PL (occurrence: PL)
  Receive Date: 20240123
  Receipt Date: 20240123
  Transmission Date: 20240410
  Serious: Yes (Hospitalization, Other)
  Sender: FDA-Public Use
  Company Number: None

PATIENT
  Age: 57 Year
  Sex: Female

DRUGS (3)
  1. IBUPROFEN [Suspect]
     Active Substance: IBUPROFEN
     Indication: Pain
     Dosage: 400 MILLIGRAM, QD, CHRONICALLY, FILM COATED TABLET
     Route: 065
  2. IBUPROFEN [Suspect]
     Active Substance: IBUPROFEN
     Indication: Back pain
  3. IBUPROFEN [Suspect]
     Active Substance: IBUPROFEN
     Indication: Spinal pain

REACTIONS (5)
  - Tubulointerstitial nephritis [Recovered/Resolved]
  - Pain [Recovered/Resolved]
  - Leukocyturia [Unknown]
  - Blood creatinine increased [Unknown]
  - Leukocytosis [Unknown]
